FAERS Safety Report 9856975 (Version 1)
Quarter: 2014Q1

REPORT INFORMATION
  Report Type: Spontaneous
  Country: ME (occurrence: ME)
  Receive Date: 20140130
  Receipt Date: 20140130
  Transmission Date: 20141002
  Serious: Yes (Hospitalization)
  Sender: FDA-Public Use
  Company Number: PHHY2014ME008544

PATIENT
  Age: 64 Year
  Sex: Female
  Weight: 85 kg

DRUGS (7)
  1. METHOTREXATE [Suspect]
     Indication: RHEUMATOID ARTHRITIS
     Dosage: 20 MG, QW
     Route: 030
     Dates: start: 201203, end: 201306
  2. INFLIXIMAB [Suspect]
     Dosage: 300 MG, UNK
     Route: 042
     Dates: start: 20130606
  3. INFLIXIMAB [Suspect]
     Dosage: 300 MG, UNK
     Route: 042
     Dates: start: 20130620
  4. INFLIXIMAB [Suspect]
     Dosage: 300 MG, UNK
     Route: 042
     Dates: start: 20130729
  5. NAPROXEN [Concomitant]
     Route: 048
     Dates: start: 201203
  6. CONTROLOC [Concomitant]
     Route: 048
     Dates: start: 201203
  7. ALFACALCIDOL [Concomitant]
     Route: 048
     Dates: start: 201203

REACTIONS (1)
  - Pulmonary tuberculosis [Unknown]
